FAERS Safety Report 6183764-9 (Version None)
Quarter: 2009Q2

REPORT INFORMATION
  Report Type: 
  Country: None (occurrence: None)
  Receive Date: 20090508
  Receipt Date: 20090407
  Transmission Date: 20091009
  Serious: No
  Sender: FDA-Public Use
  Company Number: A0765285A

PATIENT
  Age: 54 Year
  Sex: Male

DRUGS (7)
  1. ALTABAX [Suspect]
     Indication: SKIN INFECTION
     Dosage: 1APP TWICE PER DAY
     Route: 061
     Dates: start: 20090122, end: 20090123
  2. NEOSPORIN [Concomitant]
  3. SULPHAMETHIZOLE [Concomitant]
  4. LIPITOR [Concomitant]
  5. ZETIA [Concomitant]
  6. NIACIN [Concomitant]
  7. ASPIRIN [Concomitant]

REACTIONS (5)
  - APPLICATION SITE BLEEDING [None]
  - APPLICATION SITE IRRITATION [None]
  - APPLICATION SITE PAIN [None]
  - IMPAIRED HEALING [None]
  - WOUND SECRETION [None]
